FAERS Safety Report 9109590 (Version 2)
Quarter: 2013Q1

REPORT INFORMATION
  Report Type: Spontaneous
  Country: US (occurrence: US)
  Receive Date: 20130222
  Receipt Date: 20130318
  Transmission Date: 20140127
  Serious: Yes (Death, Hospitalization, Other)
  Sender: FDA-Public Use
  Company Number: US-BRISTOL-MYERS SQUIBB COMPANY-17384892

PATIENT
  Age: 96 Year
  Sex: Female
  Weight: 61.22 kg

DRUGS (5)
  1. COUMADIN [Suspect]
  2. LISINOPRIL [Suspect]
     Dates: end: 201111
  3. REVATIO [Suspect]
     Indication: PULMONARY HYPERTENSION
     Route: 048
     Dates: start: 201111
  4. LASIX [Suspect]
     Dates: start: 200706
  5. ASPIRIN [Suspect]

REACTIONS (6)
  - Pulmonary hypertension [Fatal]
  - Cardiac failure [Fatal]
  - Renal failure chronic [Fatal]
  - Haemorrhage [Fatal]
  - Urinary tract infection [Unknown]
  - Anaemia [Unknown]
